FAERS Safety Report 12221712 (Version 3)
Quarter: 2016Q2

REPORT INFORMATION
  Report Type: Spontaneous
  Country: US (occurrence: US)
  Receive Date: 20160330
  Receipt Date: 20160509
  Transmission Date: 20160815
  Serious: Yes (Other)
  Sender: FDA-Public Use
  Company Number: US-MDT-ADR-2016-00587

PATIENT
  Age: 54 Year
  Sex: Female

DRUGS (23)
  1. PANTOPRAZOLE [Suspect]
     Active Substance: PANTOPRAZOLE SODIUM
  2. NASONEX [Suspect]
     Active Substance: MOMETASONE FUROATE
  3. ASPIRIN. [Suspect]
     Active Substance: ASPIRIN
  4. PROVENTIL [Suspect]
     Active Substance: ALBUTEROL
  5. VENLAFAXINE [Suspect]
     Active Substance: VENLAFAXINE HYDROCHLORIDE
  6. FLONASE [Suspect]
     Active Substance: FLUTICASONE PROPIONATE
  7. DOCUSATE SODIUM. [Suspect]
     Active Substance: DOCUSATE SODIUM
  8. SILVER SULFADIAZINE. [Suspect]
     Active Substance: SILVER SULFADIAZINE
  9. AVONEX [Suspect]
     Active Substance: INTERFERON BETA-1A
  10. VITAMIN D [Suspect]
     Active Substance: CHOLECALCIFEROL
  11. ADVAIR HFA [Suspect]
     Active Substance: FLUTICASONE PROPIONATE\SALMETEROL XINAFOATE
  12. FISH OIL [Suspect]
     Active Substance: FISH OIL
  13. BACLOFEN. [Suspect]
     Active Substance: BACLOFEN
     Dosage: 460.6 MG/DAY
     Route: 037
     Dates: start: 20100414, end: 20160116
  14. MULTIVITAMIN [Suspect]
     Active Substance: VITAMINS
  15. LYRICA [Suspect]
     Active Substance: PREGABALIN
  16. SPIRONOLACTONE. [Suspect]
     Active Substance: SPIRONOLACTONE
  17. LEVOTHYROXINE. [Suspect]
     Active Substance: LEVOTHYROXINE
  18. NOVOLOG [Suspect]
     Active Substance: INSULIN ASPART
  19. LISINOPRIL. [Suspect]
     Active Substance: LISINOPRIL
  20. LOVAZA [Suspect]
     Active Substance: OMEGA-3-ACID ETHYL ESTERS
  21. FENOFIBRATE. [Suspect]
     Active Substance: FENOFIBRATE
  22. LANTUS [Suspect]
     Active Substance: INSULIN GLARGINE
  23. HYDROCODONE +#45;APAP [Suspect]
     Active Substance: ACETAMINOPHEN\HYDROCODONE BITARTRATE

REACTIONS (2)
  - Medical device site infection [Unknown]
  - Staphylococcal infection [Unknown]

NARRATIVE: CASE EVENT DATE: 20151009
